FAERS Safety Report 6473844-2 (Version None)
Quarter: 2009Q4

REPORT INFORMATION
  Report Type: 
  Country: None (occurrence: None)
  Receive Date: 20091204
  Receipt Date: 20091201
  Transmission Date: 20100525
  Serious: Yes (Other)
  Sender: FDA-Public Use
  Company Number: IT-ROCHE-672293

PATIENT
  Sex: Female

DRUGS (1)
  1. XELODA [Suspect]
     Indication: BREAST CANCER
     Dosage: FREQUENCY: DAILY
     Route: 048
     Dates: start: 20091020, end: 20091201

REACTIONS (2)
  - DERMATITIS ATOPIC [None]
  - DIARRHOEA [None]
